FAERS Safety Report 19137612 (Version 2)
Quarter: 2021Q3

REPORT INFORMATION
  Report Type: Spontaneous
  Country: US (occurrence: US)
  Receive Date: 20210414
  Receipt Date: 20210806
  Transmission Date: 20211014
  Serious: Yes (Other)
  Sender: FDA-Public Use
  Company Number: US-GILEAD-2021-0524852

PATIENT
  Age: 40 Year
  Sex: Male
  Weight: 142 kg

DRUGS (43)
  1. BENZONATATE. [Concomitant]
     Active Substance: BENZONATATE
  2. ERYTHROMYCIN. [Concomitant]
     Active Substance: ERYTHROMYCIN
  3. PROMETHAZINE [Concomitant]
     Active Substance: PROMETHAZINE HYDROCHLORIDE
  4. TRAMADOL. [Concomitant]
     Active Substance: TRAMADOL
  5. ALPRAZOLAM. [Concomitant]
     Active Substance: ALPRAZOLAM
  6. METRONIDAZOLE. [Concomitant]
     Active Substance: METRONIDAZOLE
  7. VALACYCLOVIR [Concomitant]
     Active Substance: VALACYCLOVIR HYDROCHLORIDE
  8. VITAMIN D2 [Concomitant]
     Active Substance: ERGOCALCIFEROL
  9. SELZENTRY [Concomitant]
     Active Substance: MARAVIROC
  10. AFLURIA NOS [Concomitant]
     Active Substance: INFLUENZA VIRUS VACCINE TRIVALENT TYPE A+B AFLURIA
  11. CYCLOBENZAPRINE. [Concomitant]
     Active Substance: CYCLOBENZAPRINE
  12. ONDANSETRON [Concomitant]
     Active Substance: ONDANSETRON
  13. OSELTAMIVIR [Concomitant]
     Active Substance: OSELTAMIVIR
  14. PROAIR HFA [Concomitant]
     Active Substance: ALBUTEROL SULFATE
  15. VITAMIN B12 [Concomitant]
     Active Substance: CYANOCOBALAMIN
  16. XENICAL [Concomitant]
     Active Substance: ORLISTAT
  17. DICLOFENAC [Concomitant]
     Active Substance: DICLOFENAC
  18. GABAPENTIN. [Concomitant]
     Active Substance: GABAPENTIN
  19. FLUOCINOLONE [Concomitant]
     Active Substance: FLUOCINOLONE
  20. FLUTICASONE. [Concomitant]
     Active Substance: FLUTICASONE
  21. HYDROCHLOROTHIAZIDE. [Concomitant]
     Active Substance: HYDROCHLOROTHIAZIDE
  22. PHENERGAN AND CHLORAL HYDRATE [Concomitant]
  23. AZITHROMYCIN ANHYDROUS. [Concomitant]
     Active Substance: AZITHROMYCIN ANHYDROUS
  24. CLOBETASOL [Concomitant]
     Active Substance: CLOBETASOL
  25. AMOXICILLIN. [Concomitant]
     Active Substance: AMOXICILLIN
  26. CEFUROXIME. [Concomitant]
     Active Substance: CEFUROXIME
  27. HYDROCODONE [Concomitant]
     Active Substance: HYDROCODONE
  28. NAPROXEN. [Concomitant]
     Active Substance: NAPROXEN
  29. ATRIPLA [Suspect]
     Active Substance: EFAVIRENZ\EMTRICITABINE\TENOFOVIR DISOPROXIL FUMARATE
     Indication: HIV INFECTION
     Dosage: UNK
     Route: 048
     Dates: start: 200805
  30. CITALOPRAM [Concomitant]
     Active Substance: CITALOPRAM HYDROBROMIDE
  31. FLUVIRIN A [Concomitant]
  32. KETOCONAZOLE. [Concomitant]
     Active Substance: KETOCONAZOLE
  33. PREDNISONE. [Concomitant]
     Active Substance: PREDNISONE
  34. SUSTIVA [Concomitant]
     Active Substance: EFAVIRENZ
  35. WELLBUTRIN [Concomitant]
     Active Substance: BUPROPION HYDROCHLORIDE
  36. VITAMIN D3 [Concomitant]
     Active Substance: CHOLECALCIFEROL
  37. ALBUTEROL [SALBUTAMOL] [Concomitant]
     Active Substance: ALBUTEROL
  38. DESONIDE. [Concomitant]
     Active Substance: DESONIDE
  39. DEXAMETHASONE. [Concomitant]
     Active Substance: DEXAMETHASONE
  40. EFAVIRENZ. [Concomitant]
     Active Substance: EFAVIRENZ
  41. HYDROXYZINE [Concomitant]
     Active Substance: HYDROXYZINE HYDROCHLORIDE
  42. IBUPROFEN. [Concomitant]
     Active Substance: IBUPROFEN
  43. LOPERAMIDE [Concomitant]
     Active Substance: LOPERAMIDE

REACTIONS (7)
  - Chronic kidney disease [Not Recovered/Not Resolved]
  - Anhedonia [Not Recovered/Not Resolved]
  - Bone density decreased [Not Recovered/Not Resolved]
  - Emotional distress [Not Recovered/Not Resolved]
  - Pain [Not Recovered/Not Resolved]
  - Anxiety [Not Recovered/Not Resolved]
  - Foot fracture [Recovered/Resolved]

NARRATIVE: CASE EVENT DATE: 2009
